FAERS Safety Report 21404790 (Version 1)
Quarter: 2022Q3

REPORT INFORMATION
  Report Type: Spontaneous
  Country: US (occurrence: None)
  Receive Date: 20220930
  Receipt Date: 20220930
  Transmission Date: 20221027
  Serious: Yes (Hospitalization)
  Sender: FDA-Public Use
  Company Number: None

PATIENT
  Sex: Female

DRUGS (11)
  1. MYCOPHENOLIC ACID [Suspect]
     Active Substance: MYCOPHENOLIC ACID
     Indication: Renal transplant
     Dosage: FREQUENCY : TWICE A DAY;?
     Route: 048
     Dates: start: 20150827
  2. MYCOPHENOLIC ACID [Suspect]
     Active Substance: MYCOPHENOLIC ACID
     Dosage: FREQUENCY : TWICE A DAY;?
     Route: 048
  3. CENTRUM TAB SILVER [Concomitant]
  4. CLONIDINE [Concomitant]
     Active Substance: CLONIDINE
  5. FISH OIL [Concomitant]
     Active Substance: FISH OIL
  6. GLIPIZIDE [Concomitant]
     Active Substance: GLIPIZIDE
  7. IPRATROPIUM/ SOL ALBUTER [Concomitant]
  8. METFORMIN [Concomitant]
     Active Substance: METFORMIN HYDROCHLORIDE
  9. METOPROLOL [Concomitant]
     Active Substance: METOPROLOL
  10. PROGRAF [Concomitant]
     Active Substance: TACROLIMUS
  11. TACROLIMUS [Concomitant]
     Active Substance: TACROLIMUS

REACTIONS (1)
  - Pneumonia [None]
